FAERS Safety Report 6749227-4 (Version None)
Quarter: 2010Q2

REPORT INFORMATION
  Report Type: 
  Country: None (occurrence: None)
  Receive Date: 20100601
  Receipt Date: 20100525
  Transmission Date: 20101027
  Serious: Yes (Death, Hospitalization)
  Sender: FDA-Public Use
  Company Number: US-BAYER-201017559NA

PATIENT
  Age: 76 Year
  Sex: Female

DRUGS (3)
  1. NEXAVAR [Suspect]
     Indication: GASTROINTESTINAL STROMAL TUMOUR
     Dosage: TOTAL DAILY DOSE: 800 MG  UNIT DOSE: 200 MG
     Route: 048
     Dates: start: 20100101, end: 20100201
  2. NEXAVAR [Suspect]
     Dosage: TOTAL DAILY DOSE: 800 MG  UNIT DOSE: 200 MG
     Route: 048
     Dates: start: 20100201
  3. ZOFRAN [Concomitant]
     Indication: NAUSEA
     Dosage: EVERY 8 HOURS

REACTIONS (5)
  - APHAGIA [None]
  - CONVULSION [None]
  - DEATH [None]
  - DECREASED APPETITE [None]
  - RASH [None]
